FAERS Safety Report 9434881 (Version 1)
Quarter: 2013Q3

REPORT INFORMATION
  Report Type: Report from Study
  Country: US (occurrence: US)
  Receive Date: 20130801
  Receipt Date: 20130801
  Transmission Date: 20140515
  Serious: Yes (Hospitalization)
  Sender: FDA-Public Use
  Company Number: US-SANOFI-AVENTIS-2013SA076685

PATIENT
  Age: 21 Year
  Sex: Male

DRUGS (2)
  1. AUBAGIO [Suspect]
     Dosage: TAKEN FROM - 15TH?TAKEN TO - 26 TH
     Route: 048
  2. CORTICOSTEROID NOS [Concomitant]

REACTIONS (1)
  - Multiple sclerosis relapse [Not Recovered/Not Resolved]
